FAERS Safety Report 9843781 (Version 1)
Quarter: 2013Q4

REPORT INFORMATION
  Report Type: Spontaneous
  Country: US (occurrence: None)
  Receive Date: 20131223
  Receipt Date: 20131223
  Transmission Date: 20140711
  Serious: No
  Sender: FDA-Public Use
  Company Number: 1000051579

PATIENT
  Sex: Male

DRUGS (5)
  1. LINZESS ( LINACLOTIDE) [Suspect]
     Indication: CONSTIPATION
     Dosage: 145MCG (145 MG, 1 IN 1 D), ORAL
     Route: 048
     Dates: start: 20131113
  2. NORVASC (AMLODIPINE BESYLATE) (AMLODIPINE BESYLATE) [Concomitant]
  3. ASPIRIN (ACETYLSALICYLIC ACID) (ACETYLSALICYLIC ACID) [Concomitant]
  4. ZANTAC (RANITIDINE HYDROCHLORIDE) (RANITIDINE HYDROCHLORIDE) [Concomitant]
  5. CRESTOR (ROSUVASTATIN CALCIUM) (ROSUVASTATIN CALCIUM) [Concomitant]

REACTIONS (2)
  - Flatulence [None]
  - Dysgeusia [None]
